FAERS Safety Report 7224686-1 (Version None)
Quarter: 2011Q1

REPORT INFORMATION
  Report Type: 
  Country: None (occurrence: None)
  Receive Date: 20110113
  Receipt Date: 20110104
  Transmission Date: 20110831
  Serious: Yes (Hospitalization)
  Sender: FDA-Public Use
  Company Number: FR-JNJFOC-20110102746

PATIENT
  Age: 70 Year
  Sex: Female

DRUGS (2)
  1. ZALDIAR [Suspect]
     Indication: PAIN
     Route: 048
  2. ZAMUDOL [Suspect]
     Indication: PAIN
     Route: 048

REACTIONS (5)
  - SWELLING FACE [None]
  - OEDEMA PERIPHERAL [None]
  - WEIGHT INCREASED [None]
  - OEDEMA [None]
  - COUGH [None]
